FAERS Safety Report 8365540-1 (Version None)
Quarter: 2012Q2

REPORT INFORMATION
  Report Type: 
  Country: None (occurrence: None)
  Receive Date: 20120516
  Receipt Date: 20120510
  Transmission Date: 20120825
  Serious: Yes (Hospitalization, Other)
  Sender: FDA-Public Use
  Company Number: US-PFIZER INC-2012114584

PATIENT
  Sex: Female
  Weight: 68.934 kg

DRUGS (5)
  1. REVATIO [Suspect]
     Indication: PULMONARY ARTERIAL HYPERTENSION
     Dosage: 40 MG, 3X/DAY
     Route: 048
     Dates: start: 20110201
  2. BISMUTH SUBSALICYLATE [Concomitant]
     Indication: NAUSEA
     Dosage: UNK
  3. INSULIN [Concomitant]
     Indication: DIABETES MELLITUS
     Dosage: UNK, 2X/DAY
  4. REMODULIN [Concomitant]
     Indication: PULMONARY ARTERIAL HYPERTENSION
     Dosage: UNK
  5. BISMUTH SUBSALICYLATE [Concomitant]
     Indication: ABDOMINAL DISCOMFORT

REACTIONS (4)
  - HAEMATEMESIS [None]
  - VOMITING [None]
  - HAEMATOCHEZIA [None]
  - GASTRIC ULCER HAEMORRHAGE [None]
